FAERS Safety Report 22166661 (Version 1)
Quarter: 2023Q2

REPORT INFORMATION
  Report Type: Spontaneous
  Country: US (occurrence: US)
  Receive Date: 20230403
  Receipt Date: 20230403
  Transmission Date: 20230722
  Serious: No
  Sender: FDA-Public Use
  Company Number: US-BEH-2023156974

PATIENT
  Sex: Female

DRUGS (2)
  1. HIZENTRA [Suspect]
     Active Substance: HUMAN IMMUNOGLOBULIN G
     Indication: Ehlers-Danlos syndrome
     Dosage: 12 GRAM, QMT
     Route: 058
     Dates: start: 2023
  2. HIZENTRA [Suspect]
     Active Substance: HUMAN IMMUNOGLOBULIN G
     Dosage: 12 GRAM, QOW
     Route: 058
     Dates: start: 202302

REACTIONS (3)
  - Tachycardia [Unknown]
  - No adverse event [Unknown]
  - Off label use [Unknown]
